FAERS Safety Report 16216522 (Version 1)
Quarter: 2019Q2

REPORT INFORMATION
  Report Type: Spontaneous
  Country: BE (occurrence: BE)
  Receive Date: 20190419
  Receipt Date: 20190419
  Transmission Date: 20190711
  Serious: Yes (Hospitalization)
  Sender: FDA-Public Use
  Company Number: BE-TEVA-2019-BE-1038158

PATIENT
  Age: 63 Year
  Sex: Male

DRUGS (6)
  1. MESNA. [Suspect]
     Active Substance: MESNA
     Indication: SQUAMOUS CELL CARCINOMA OF SKIN
     Dates: start: 20190215, end: 20190215
  2. IFOSFAMIDE. [Suspect]
     Active Substance: IFOSFAMIDE
     Indication: SQUAMOUS CELL CARCINOMA OF SKIN
     Dosage: TREATMENT OF CHEMOTHERAPY REGIMEN EVERY 3 WEEKS?DAY 1: PACLITAXEL/CARBOPLATIN/IFOSFAMIDE (+ UROMITEX
     Route: 042
     Dates: start: 20190215, end: 20190216
  3. BISOPROLOL 5 MG [Concomitant]
     Active Substance: BISOPROLOL
  4. PACLITAXEL. [Suspect]
     Active Substance: PACLITAXEL
     Indication: SQUAMOUS CELL CARCINOMA OF SKIN
     Dates: start: 20190215, end: 20190215
  5. XARELTO [Concomitant]
     Active Substance: RIVAROXABAN
  6. CARBOPLATIN. [Suspect]
     Active Substance: CARBOPLATIN
     Indication: SQUAMOUS CELL CARCINOMA OF SKIN
     Dates: start: 20190215, end: 20190215

REACTIONS (1)
  - Encephalopathy [Recovered/Resolved]

NARRATIVE: CASE EVENT DATE: 20190217
